FAERS Safety Report 9651724 (Version 1)
Quarter: 2013Q4

REPORT INFORMATION
  Report Type: Spontaneous
  Country: US (occurrence: US)
  Receive Date: 20131029
  Receipt Date: 20131029
  Transmission Date: 20140711
  Serious: No
  Sender: FDA-Public Use
  Company Number: US-ENDO PHARMACEUTICALS INC.-ISOS20110004

PATIENT
  Age: 77 Year
  Sex: Female

DRUGS (1)
  1. ISOSORBIDE MONONITRATE ER TABLETS [Suspect]
     Indication: BLOOD PRESSURE
     Route: 048
     Dates: start: 20110919

REACTIONS (1)
  - Medication residue present [Not Recovered/Not Resolved]
